FAERS Safety Report 14378421 (Version 1)
Quarter: 2018Q1

REPORT INFORMATION
  Report Type: Other
  Country: GB (occurrence: GB)
  Receive Date: 20180111
  Receipt Date: 20180111
  Transmission Date: 20180509
  Serious: Yes (Death, Hospitalization, Other)
  Sender: FDA-Public Use
  Company Number: GB-STRIDES ARCOLAB LIMITED-2018SP000168

PATIENT

DRUGS (2)
  1. VANCOMYCIN [Suspect]
     Active Substance: VANCOMYCIN
     Indication: ENDOCARDITIS
     Dosage: VARIABLE DOSES, SOME BY CONTINUOUS INFUSION WHILST ON INTENSIVE CARE UNIT, UNK
     Route: 042
     Dates: start: 20171201, end: 20171211
  2. RIFAMPICIN [Suspect]
     Active Substance: RIFAMPIN
     Indication: ENDOCARDITIS
     Dosage: VARIABLE BASED ON RENAL/HEPATIC FUNCTION
     Route: 048

REACTIONS (4)
  - Rash generalised [Unknown]
  - Death [Fatal]
  - Renal impairment [Unknown]
  - Hepatic function abnormal [Unknown]

NARRATIVE: CASE EVENT DATE: 20171208
